FAERS Safety Report 25943370 (Version 3)
Quarter: 2025Q4

REPORT INFORMATION
  Report Type: Spontaneous
  Country: VN (occurrence: VN)
  Receive Date: 20251021
  Receipt Date: 20251128
  Transmission Date: 20260117
  Serious: Yes (Death)
  Sender: ROCHE
  Company Number: VN-ROCHE-10000414674

PATIENT
  Age: 71 Year
  Sex: Female
  Weight: 53 kg

DRUGS (2)
  1. MABTHERA [Suspect]
     Active Substance: RITUXIMAB
     Indication: Diffuse large B-cell lymphoma
     Dosage: STRENGTH: 500MG/50ML
     Route: 042
     Dates: start: 20251009, end: 20251009
  2. MABTHERA [Suspect]
     Active Substance: RITUXIMAB
     Dosage: STRENGTH: 500MG/50ML
     Route: 042
     Dates: start: 20251009, end: 20251009

REACTIONS (1)
  - Anaphylactic shock [Fatal]

NARRATIVE: CASE EVENT DATE: 20251009
